FAERS Safety Report 12104288 (Version 1)
Quarter: 2016Q1

REPORT INFORMATION
  Report Type: Report from Study
  Country: US (occurrence: US)
  Receive Date: 20160223
  Receipt Date: 20160223
  Transmission Date: 20160526
  Serious: Yes (Hospitalization)
  Sender: FDA-Public Use
  Company Number: PHHY2016US021804

PATIENT
  Age: 11 Year
  Sex: Female
  Weight: 37 kg

DRUGS (3)
  1. HYCAMTIN [Suspect]
     Active Substance: TOPOTECAN HYDROCHLORIDE
     Indication: NEUROBLASTOMA
     Dosage: UNK
     Route: 065
     Dates: start: 20151027, end: 20151121
  2. CRIZOTINIB [Suspect]
     Active Substance: CRIZOTINIB
     Indication: NEUROBLASTOMA
     Dosage: UNK
     Route: 065
     Dates: start: 20151027, end: 20151202
  3. CYCLOPHOSPHAMIDE. [Suspect]
     Active Substance: CYCLOPHOSPHAMIDE
     Indication: NEUROBLASTOMA
     Dosage: UNK
     Route: 065
     Dates: start: 20151027, end: 20151121

REACTIONS (8)
  - Pyrexia [Recovered/Resolved]
  - Neutropenia [Unknown]
  - Oropharyngeal pain [Unknown]
  - Oesophagitis [Recovered/Resolved]
  - Clostridium difficile colitis [Unknown]
  - Oesophageal infection [Recovering/Resolving]
  - Lung infection [Recovering/Resolving]
  - Pulmonary mass [Unknown]

NARRATIVE: CASE EVENT DATE: 20151127
